FAERS Safety Report 25108741 (Version 2)
Quarter: 2025Q2

REPORT INFORMATION
  Report Type: Spontaneous
  Country: US (occurrence: US)
  Receive Date: 20250322
  Receipt Date: 20250509
  Transmission Date: 20250717
  Serious: No
  Sender: KARYOPHARM THERAPEUTICS
  Company Number: US-KARYOPHARM-2025KPT100025

PATIENT

DRUGS (12)
  1. SELINEXOR [Suspect]
     Active Substance: SELINEXOR
     Indication: Plasma cell myeloma
     Route: 048
     Dates: start: 20250304
  2. SELINEXOR [Suspect]
     Active Substance: SELINEXOR
     Route: 048
     Dates: start: 202503, end: 2025
  3. ACYCLOVIR [Concomitant]
     Active Substance: ACYCLOVIR
  4. ALLOPURINOL [Concomitant]
     Active Substance: ALLOPURINOL
  5. BETAMETHASONE [Concomitant]
     Active Substance: BETAMETHASONE
  6. DEXAMETHASONE [Concomitant]
     Active Substance: DEXAMETHASONE
  7. DULOXETINE [Concomitant]
     Active Substance: DULOXETINE
  8. GABAPENTIN [Concomitant]
     Active Substance: GABAPENTIN
  9. OXYCODONE [Concomitant]
     Active Substance: OXYCODONE
  10. PROCHLORPERAZINE [Concomitant]
     Active Substance: PROCHLORPERAZINE
  11. LORATADINE [Concomitant]
     Active Substance: LORATADINE
  12. TRIAMCINOLONE [Concomitant]
     Active Substance: TRIAMCINOLONE

REACTIONS (7)
  - Fatigue [Unknown]
  - Platelet count decreased [Unknown]
  - Haemoglobin decreased [Unknown]
  - Asthenia [Unknown]
  - Vomiting [Unknown]
  - Diarrhoea [Unknown]
  - Drug ineffective [Unknown]

NARRATIVE: CASE EVENT DATE: 20250101
